APPROVED DRUG PRODUCT: FENOFIBRATE (MICRONIZED)
Active Ingredient: FENOFIBRATE
Strength: 200MG
Dosage Form/Route: CAPSULE;ORAL
Application: A202676 | Product #003
Applicant: RISING PHARMA HOLDING INC
Approved: Oct 23, 2012 | RLD: No | RS: No | Type: DISCN